FAERS Safety Report 23544831 (Version 2)
Quarter: 2024Q1

REPORT INFORMATION
  Report Type: Report from Study
  Country: PL (occurrence: PL)
  Receive Date: 20240220
  Receipt Date: 20240305
  Transmission Date: 20240410
  Serious: Yes (Death)
  Sender: FDA-Public Use
  Company Number: PL-PFIZER INC-PV202400023299

PATIENT
  Age: 87 Year
  Sex: Male
  Weight: 70 kg

DRUGS (18)
  1. TAFAMIDIS MEGLUMINE [Suspect]
     Active Substance: TAFAMIDIS MEGLUMINE
     Indication: Cardiac amyloidosis
     Dosage: 61 MG, 1X/DAY
     Route: 048
     Dates: start: 20230118
  2. TAFAMIDIS MEGLUMINE [Suspect]
     Active Substance: TAFAMIDIS MEGLUMINE
     Dosage: 61 MG, 1X/DAY
     Route: 048
  3. TAFAMIDIS MEGLUMINE [Suspect]
     Active Substance: TAFAMIDIS MEGLUMINE
     Dosage: 61 MG, 1X/DAY
     Route: 048
  4. COLCHICAN [Concomitant]
     Indication: Pericardial effusion
     Dosage: 1 TABLET 2X/DAY
     Dates: start: 20221004
  5. PREDNISONE ACETATE [Concomitant]
     Active Substance: PREDNISONE ACETATE
     Indication: Pericardial effusion
     Dosage: 2.5 MG, 1X/DAY
     Dates: start: 20221004
  6. RAMIPRIL [Concomitant]
     Active Substance: RAMIPRIL
     Indication: Cardiac failure
     Dosage: 2.5 MG, 1X/DAY
     Dates: start: 20221004
  7. ELIQUIS [Concomitant]
     Active Substance: APIXABAN
     Indication: Atrial fibrillation
     Dosage: 2.5 MG, 2X/DAY
     Dates: start: 20240104
  8. TORSEMIDE [Concomitant]
     Active Substance: TORSEMIDE
     Indication: Cardiac failure
     Dosage: 20 MG, 2X/DAY
     Dates: start: 20221004
  9. DAPAGLIFLOZIN [Concomitant]
     Active Substance: DAPAGLIFLOZIN
     Indication: Cardiac failure
     Dosage: 10 MG
     Dates: start: 20221004
  10. POTASSIUM CHLORIDE [Concomitant]
     Active Substance: POTASSIUM CHLORIDE
     Indication: Diuretic therapy
     Dosage: 2 TABLETS 2X/DAY
  11. OMEPRAZOLE [Concomitant]
     Active Substance: OMEPRAZOLE
     Indication: Reflux gastritis
     Dosage: 20 MG
     Dates: start: 20221004
  12. NUTRAMIL COMPLEX PROTEIN [Concomitant]
     Indication: Decreased appetite
     Dosage: SACHET  2X/DAY
     Dates: start: 20221004
  13. ALLOPURINOL [Concomitant]
     Active Substance: ALLOPURINOL
     Indication: Hyperuricaemia
     Dosage: 100 MG
     Dates: start: 20221004
  14. METFORMIN HYDROCHLORIDE [Concomitant]
     Active Substance: METFORMIN HYDROCHLORIDE
     Indication: Diabetes mellitus
     Dosage: 850 MG, 3X/DAY 1 TABLET
     Dates: start: 20221004
  15. DIGOXIN [Concomitant]
     Active Substance: DIGOXIN
     Indication: Atrial fibrillation
     Dosage: 0.1 MG, 1X/DAY  1 TABLET
     Dates: start: 20221004
  16. DIGOXIN [Concomitant]
     Active Substance: DIGOXIN
     Indication: Cardiac failure
  17. BIBLOC [BISOPROLOL FUMARATE] [Concomitant]
     Indication: Atrial fibrillation
     Dosage: 2.5 MG, 1X/DAY 1 TABLET
  18. BIBLOC [BISOPROLOL FUMARATE] [Concomitant]
     Indication: Cardiac failure

REACTIONS (3)
  - Cardiac arrest [Fatal]
  - Disease progression [Fatal]
  - Cardiac amyloidosis [Fatal]

NARRATIVE: CASE EVENT DATE: 20240122
